FAERS Safety Report 16795091 (Version 3)
Quarter: 2019Q3

REPORT INFORMATION
  Report Type: Spontaneous
  Country: US (occurrence: US)
  Receive Date: 20190911
  Receipt Date: 20190916
  Transmission Date: 20191005
  Serious: No
  Sender: FDA-Public Use
  Company Number: US-PFIZER INC-2019390962

PATIENT
  Age: 54 Year
  Sex: Female

DRUGS (2)
  1. MISOPROSTOL. [Suspect]
     Active Substance: MISOPROSTOL
     Dosage: 400 UG, SINGLE
     Dates: start: 201909
  2. MISOPROSTOL. [Suspect]
     Active Substance: MISOPROSTOL
     Indication: CERVICAL DILATATION
     Dosage: 400 UG, UNK
     Dates: start: 201212

REACTIONS (8)
  - Insomnia [Unknown]
  - Muscle spasms [Unknown]
  - Abdominal pain [Unknown]
  - Product use in unapproved indication [Unknown]
  - Exposure during pregnancy [Unknown]
  - Off label use [Unknown]
  - Pain [Recovering/Resolving]
  - Weight decreased [Unknown]

NARRATIVE: CASE EVENT DATE: 201212
